FAERS Safety Report 9422462 (Version 1)
Quarter: 2013Q3

REPORT INFORMATION
  Report Type: Spontaneous
  Country: CR (occurrence: CR)
  Receive Date: 20130726
  Receipt Date: 20130726
  Transmission Date: 20140515
  Serious: Yes (Other)
  Sender: FDA-Public Use
  Company Number: CR-JNJFOC-20130712667

PATIENT
  Age: 32 Year
  Sex: Male

DRUGS (4)
  1. XARELTO [Suspect]
     Indication: THROMBOSIS PROPHYLAXIS
     Route: 048
  2. XARELTO [Suspect]
     Indication: VENOUS THROMBOSIS LIMB
     Route: 048
  3. FOLIC ACID [Concomitant]
     Indication: AUTOIMMUNE HAEMOLYTIC ANAEMIA
     Route: 065
  4. PREDNISOLONE [Concomitant]
     Indication: AUTOIMMUNE HAEMOLYTIC ANAEMIA
     Route: 065

REACTIONS (1)
  - Platelet count decreased [Recovering/Resolving]
